FAERS Safety Report 8266073-3 (Version None)
Quarter: 2012Q2

REPORT INFORMATION
  Report Type: 
  Country: None (occurrence: None)
  Receive Date: 20120406
  Receipt Date: 20120327
  Transmission Date: 20120825
  Serious: Yes (Other)
  Sender: FDA-Public Use
  Company Number: US-ABBOTT-12P-163-0918814-00

PATIENT
  Sex: Female

DRUGS (2)
  1. HUMIRA [Suspect]
     Indication: CROHN'S DISEASE
     Dates: start: 20091112
  2. FLAGYL [Concomitant]
     Indication: PRODUCT USED FOR UNKNOWN INDICATION
     Dates: start: 20090301

REACTIONS (21)
  - CONVULSION [None]
  - MENTAL STATUS CHANGES [None]
  - INFECTION [None]
  - DYSPHAGIA [None]
  - CONFUSIONAL STATE [None]
  - LETHARGY [None]
  - UPPER RESPIRATORY TRACT INFECTION [None]
  - SOMNOLENCE [None]
  - INAPPROPRIATE ANTIDIURETIC HORMONE SECRETION [None]
  - BRONCHOPNEUMONIA [None]
  - HEADACHE [None]
  - STREPTOCOCCAL ABSCESS [None]
  - NEPHROLITHIASIS [None]
  - BELLIGERENCE [None]
  - CROHN'S DISEASE [None]
  - GENERAL PHYSICAL HEALTH DETERIORATION [None]
  - BACK PAIN [None]
  - PYREXIA [None]
  - MUSCULOSKELETAL STIFFNESS [None]
  - HYPOXIA [None]
  - IMMUNE SYSTEM DISORDER [None]
